FAERS Safety Report 12660906 (Version 2)
Quarter: 2016Q3

REPORT INFORMATION
  Report Type: Spontaneous
  Country: US (occurrence: US)
  Receive Date: 20160817
  Receipt Date: 20160901
  Transmission Date: 20161109
  Serious: No
  Sender: FDA-Public Use
  Company Number: US-RELYPSA-RLY2016001343

PATIENT
  Sex: Female

DRUGS (20)
  1. NEURONTIN [Concomitant]
     Active Substance: GABAPENTIN
  2. ERGOCALCIFEROL. [Concomitant]
     Active Substance: ERGOCALCIFEROL
  3. NIFEDIPINE. [Concomitant]
     Active Substance: NIFEDIPINE
  4. ESCITALOPRAM OXALATE. [Concomitant]
     Active Substance: ESCITALOPRAM OXALATE
  5. LIPITOR [Concomitant]
     Active Substance: ATORVASTATIN CALCIUM
  6. VICTOZA [Concomitant]
     Active Substance: LIRAGLUTIDE
  7. VELTASSA [Suspect]
     Active Substance: PATIROMER
     Indication: HYPERKALAEMIA
     Dosage: 8.4 G, QD
     Route: 048
     Dates: start: 20160303
  8. WHITE PETROLATUM [Concomitant]
     Active Substance: PETROLATUM
  9. BIOTIN [Concomitant]
     Active Substance: BIOTIN
     Dosage: 5000 UNK, UNK
  10. SYNTHROID [Concomitant]
     Active Substance: LEVOTHYROXINE SODIUM
  11. PROGRAF [Concomitant]
     Active Substance: TACROLIMUS\TACROLIMUS ANHYDROUS
  12. BENADRYL ALLERGY [Concomitant]
     Active Substance: DIPHENHYDRAMINE HYDROCHLORIDE
  13. PROCRIT [Concomitant]
     Active Substance: ERYTHROPOIETIN
  14. ULTRAM ER [Concomitant]
     Active Substance: TRAMADOL HYDROCHLORIDE
  15. PROTONIX                           /00661201/ [Concomitant]
     Active Substance: OMEPRAZOLE
  16. LEVEMIR [Concomitant]
     Active Substance: INSULIN DETEMIR
  17. PROAIR HFA [Concomitant]
     Active Substance: ALBUTEROL SULFATE
  18. REGLAN [Concomitant]
     Active Substance: METOCLOPRAMIDE HYDROCHLORIDE
  19. LASIX [Concomitant]
     Active Substance: FUROSEMIDE
  20. CLONAZEPAM. [Concomitant]
     Active Substance: CLONAZEPAM

REACTIONS (1)
  - Diarrhoea [Unknown]
